FAERS Safety Report 16361951 (Version 1)
Quarter: 2019Q2

REPORT INFORMATION
  Report Type: Spontaneous
  Country: US (occurrence: US)
  Receive Date: 20190528
  Receipt Date: 20190528
  Transmission Date: 20190711
  Serious: Yes (Other)
  Sender: FDA-Public Use
  Company Number: US-PFIZER INC-2019216419

PATIENT
  Sex: Female

DRUGS (1)
  1. ADVIL PM [Suspect]
     Active Substance: DIPHENHYDRAMINE CITRATE\IBUPROFEN
     Dosage: 0.5 DF, 1X/DAY,(AT NIGHT)
     Dates: start: 2018, end: 20190519

REACTIONS (2)
  - Product use issue [Unknown]
  - Deafness [Unknown]

NARRATIVE: CASE EVENT DATE: 2018
